FAERS Safety Report 20682756 (Version 1)
Quarter: 2022Q2

REPORT INFORMATION
  Report Type: Report from Study
  Country: RU (occurrence: RU)
  Receive Date: 20220407
  Receipt Date: 20220407
  Transmission Date: 20220721
  Serious: Yes (Other)
  Sender: FDA-Public Use
  Company Number: RU-BAYER-2022A047203

PATIENT
  Sex: Male

DRUGS (3)
  1. EYLEA [Suspect]
     Active Substance: AFLIBERCEPT
     Indication: Diabetic retinal oedema
     Dosage: 2 MG, ONCE, 1ST INJECTION OF EYLEA
     Route: 031
     Dates: start: 20220127, end: 20220127
  2. EYLEA [Suspect]
     Active Substance: AFLIBERCEPT
     Dosage: 2 MG, ONCE, 2DT INJECTION OF EYLEA
     Route: 031
     Dates: start: 20220224, end: 20220224
  3. EYLEA [Suspect]
     Active Substance: AFLIBERCEPT
     Dosage: 2 MG, ONCE, 2DT INJECTION OF EYLEA
     Route: 031
     Dates: start: 20220329, end: 20220329

REACTIONS (3)
  - Conjunctivitis allergic [Recovered/Resolved]
  - Conjunctival oedema [Recovered/Resolved]
  - Pruritus [Recovered/Resolved]

NARRATIVE: CASE EVENT DATE: 20220329
